FAERS Safety Report 25330771 (Version 1)
Quarter: 2025Q2

REPORT INFORMATION
  Report Type: Report from Study
  Country: CN (occurrence: CN)
  Receive Date: 20250519
  Receipt Date: 20250519
  Transmission Date: 20250716
  Serious: Yes (Hospitalization)
  Sender: DAIICHI
  Company Number: CN-DSJP-DSJ-2023-101016

PATIENT
  Age: 64 Year
  Sex: Female
  Weight: 54 kg

DRUGS (10)
  1. EDOXABAN [Suspect]
     Active Substance: EDOXABAN
     Indication: Atrial fibrillation
     Dosage: 30 MG, QD
     Route: 065
     Dates: start: 20220610, end: 20221001
  2. QILIQIANGXIN CAPSULE [Concomitant]
     Indication: Cardiac failure
     Dosage: 0.2 G, TID
     Route: 048
     Dates: start: 2020
  3. SOURCE CAPSULE [Concomitant]
     Indication: Arterial disorder
     Dosage: 0.5 G, TID
     Route: 048
     Dates: start: 202112
  4. DIETARY SUPPLEMENT\OPHIOCORDYCEPS SINENSIS [Concomitant]
     Active Substance: DIETARY SUPPLEMENT\OPHIOCORDYCEPS SINENSIS
     Indication: Renal disorder
     Dosage: 1.5 G, TID
     Route: 048
     Dates: start: 202103
  5. METFORMIN HYDROCHLORIDE [Concomitant]
     Active Substance: METFORMIN HYDROCHLORIDE
     Indication: Diabetes mellitus
     Dosage: 0.5 G, TID
     Route: 048
     Dates: start: 2010, end: 20221001
  6. SACUBITRIL\VALSARTAN [Concomitant]
     Active Substance: SACUBITRIL\VALSARTAN
     Indication: Cardiac failure
     Route: 048
     Dates: start: 20220610, end: 202212
  7. CALCITRIOL [Concomitant]
     Active Substance: CALCITRIOL
     Indication: Osteoporosis
     Route: 048
     Dates: start: 20220423
  8. LEVOTHYROXINE SODIUM [Concomitant]
     Active Substance: LEVOTHYROXINE SODIUM
     Indication: Hypothyroidism
     Route: 048
     Dates: start: 2017
  9. PITAVASTATIN CALCIUM [Concomitant]
     Active Substance: PITAVASTATIN CALCIUM
     Indication: Hyperlipidaemia
     Route: 048
     Dates: start: 20220218
  10. PITAVASTATIN CALCIUM [Concomitant]
     Active Substance: PITAVASTATIN CALCIUM
     Indication: Prophylaxis

REACTIONS (5)
  - Glomerulonephritis chronic [Recovering/Resolving]
  - Craniocerebral injury [Recovered/Resolved]
  - Subarachnoid haemorrhage [Recovered/Resolved]
  - Brain contusion [Recovered/Resolved]
  - Brain injury [Recovered/Resolved]

NARRATIVE: CASE EVENT DATE: 20220928
